FAERS Safety Report 6789761-4 (Version None)
Quarter: 2010Q2

REPORT INFORMATION
  Report Type: 
  Country: None (occurrence: None)
  Receive Date: 20100624
  Receipt Date: 20100615
  Transmission Date: 20101027
  Serious: Yes (Other)
  Sender: FDA-Public Use
  Company Number: AU-PFIZER INC-2010075460

PATIENT
  Age: 26 Year
  Sex: Male

DRUGS (1)
  1. CHAMPIX [Suspect]
     Indication: WITHDRAWAL SYNDROME
     Dosage: UNK 1X/DAY
     Route: 048
     Dates: start: 20100205

REACTIONS (7)
  - AGITATION [None]
  - ALCOHOL ABUSE [None]
  - ANOSOGNOSIA [None]
  - LACK OF SPONTANEOUS SPEECH [None]
  - MOOD ALTERED [None]
  - OFF LABEL USE [None]
  - SUICIDE ATTEMPT [None]
